APPROVED DRUG PRODUCT: SODIUM NITROPRUSSIDE
Active Ingredient: SODIUM NITROPRUSSIDE
Strength: 25MG/ML
Dosage Form/Route: INJECTABLE;INJECTION
Application: A208635 | Product #001
Applicant: EPIC PHARMA LLC
Approved: May 4, 2017 | RLD: No | RS: No | Type: DISCN